FAERS Safety Report 8085068-6 (Version None)
Quarter: 2012Q1

REPORT INFORMATION
  Report Type: 
  Country: None (occurrence: None)
  Receive Date: 20120128
  Receipt Date: 20110317
  Transmission Date: 20120608
  Serious: No
  Sender: FDA-Public Use
  Company Number: US-ABBOTT-11P-163-0713084-00

PATIENT
  Sex: Female
  Weight: 95.34 kg

DRUGS (4)
  1. HUMIRA [Suspect]
     Indication: PSORIASIS
     Dates: start: 20100901
  2. UNKNOWN BLOOD PRESSURE PILL [Concomitant]
     Indication: HYPERTENSION
  3. PAXIL [Concomitant]
     Indication: ANXIETY
  4. TACLONEX [Concomitant]
     Indication: PSORIASIS

REACTIONS (2)
  - PSORIASIS [None]
  - VISION BLURRED [None]
